FAERS Safety Report 10609826 (Version 1)
Quarter: 2014Q4

REPORT INFORMATION
  Report Type: Spontaneous
  Country: JP (occurrence: None)
  Receive Date: 20141124
  Receipt Date: 20141124
  Transmission Date: 20150529
  Serious: Yes (Other)
  Sender: FDA-Public Use
  Company Number: JP2014JPN022083

PATIENT

DRUGS (2)
  1. ZEFIX [Suspect]
     Active Substance: LAMIVUDINE
     Route: 048
  2. HEPSERA [Suspect]
     Active Substance: ADEFOVIR DIPIVOXIL
     Route: 048

REACTIONS (2)
  - Renal impairment [None]
  - Hepatitis viral test positive [None]
